FAERS Safety Report 4661455-0 (Version None)
Quarter: 2005Q2

REPORT INFORMATION
  Report Type: 
  Country: None (occurrence: None)
  Receive Date: 20050513
  Receipt Date: 20050428
  Transmission Date: 20051028
  Serious: Yes (Hospitalization)
  Sender: FDA-Public Use
  Company Number: JP-GLAXOSMITHKLINE-B0379466A

PATIENT
  Age: 57 Year
  Sex: Female
  Weight: 59 kg

DRUGS (4)
  1. ZANTAC [Suspect]
     Indication: CHEMOTHERAPY
     Dosage: 50MG PER DAY
     Route: 042
     Dates: start: 20050420
  2. DECADRON [Suspect]
     Indication: OVARIAN CANCER
     Dosage: 10MG PER DAY
     Route: 042
     Dates: start: 20050420, end: 20050420
  3. SODIUM CHLORIDE [Concomitant]
     Dosage: 100ML PER DAY
     Route: 042
     Dates: start: 20050420, end: 20050420
  4. CARBOPLATIN + PACLITAXEL [Concomitant]
     Dates: start: 20031201

REACTIONS (7)
  - ANAPHYLACTIC SHOCK [None]
  - BLOOD PRESSURE DECREASED [None]
  - BLOOD PRESSURE DIASTOLIC DECREASED [None]
  - DYSPNOEA [None]
  - FEELING ABNORMAL [None]
  - OXYGEN SATURATION DECREASED [None]
  - SWELLING FACE [None]
